FAERS Safety Report 6267737-3 (Version None)
Quarter: 2009Q3

REPORT INFORMATION
  Report Type: 
  Country: None (occurrence: None)
  Receive Date: 20090714
  Receipt Date: 20090702
  Transmission Date: 20100115
  Serious: Yes (Other)
  Sender: FDA-Public Use
  Company Number: US-TYCO HEALTHCARE/MALLINCKRODT-T200901075

PATIENT
  Sex: Male

DRUGS (18)
  1. OPTIMARK [Suspect]
     Indication: ANGIOGRAM
     Dosage: UNK
     Dates: start: 20050105, end: 20050105
  2. NORVASC [Concomitant]
     Dosage: 5 MG, QD
  3. PREDNISONE TAB [Concomitant]
     Dosage: 10 MG, QD
  4. RENAGEL                            /01459901/ [Concomitant]
     Dosage: 2400 MG, TID WITH MEALS
  5. SENSIPAR [Concomitant]
     Dosage: 30 MG, QD
  6. ZEMPLAR [Concomitant]
     Dosage: 1 UG, QD
  7. EPOGEN [Concomitant]
     Dosage: 12,000 UNITS WITH EACH DIALYSIS
  8. COUMADIN [Concomitant]
     Dosage: 1 MG, QD
  9. NEXIUM [Concomitant]
     Dosage: 40 MG, QD
  10. ZANTAC                             /00550802/ [Concomitant]
     Dosage: 50 MG, EVERY 8 HOURS
  11. COLACE [Concomitant]
     Dosage: 100 MG, BID
  12. FOLIC ACID [Concomitant]
     Dosage: 1 MG, QD
  13. MULTIVITAMIN                       /00831701/ [Concomitant]
     Dosage: 1 TAB DAILY
  14. TYLENOL (CAPLET) [Concomitant]
     Dosage: 650 MG, EVERY 6 HOURS, PRN
  15. BENADRYL [Concomitant]
     Dosage: 50 MG, HS, PRN
  16. FOSRENOL [Concomitant]
     Indication: RENAL DISORDER
     Dosage: 1 G, TID WITH MEALS
  17. VICODIN [Concomitant]
     Indication: PAIN
  18. SODIUM THIOSULFATE [Concomitant]
     Indication: NEPHROGENIC SYSTEMIC FIBROSIS
     Route: 042

REACTIONS (2)
  - NEPHROGENIC SYSTEMIC FIBROSIS [None]
  - OFF LABEL USE [None]
